FAERS Safety Report 13116383 (Version 1)
Quarter: 2017Q1

REPORT INFORMATION
  Report Type: Spontaneous
  Country: US (occurrence: US)
  Receive Date: 20170116
  Receipt Date: 20170116
  Transmission Date: 20170428
  Serious: Yes (Death, Hospitalization, Other)
  Sender: FDA-Public Use
  Company Number: US-APOTEX-2017AP005691

PATIENT
  Age: 11 Year
  Sex: Female

DRUGS (1)
  1. BENZONATATE CAPSULES USP [Suspect]
     Active Substance: BENZONATATE
     Indication: PRODUCT USED FOR UNKNOWN INDICATION
     Route: 048

REACTIONS (7)
  - Brain injury [Fatal]
  - Seizure [Fatal]
  - Cardiogenic shock [Fatal]
  - Cardio-respiratory arrest [Fatal]
  - Toxicity to various agents [Fatal]
  - Loss of consciousness [Fatal]
  - Death [Fatal]
